FAERS Safety Report 6074825-3 (Version None)
Quarter: 2009Q1

REPORT INFORMATION
  Report Type: 
  Country: None (occurrence: None)
  Receive Date: 20090212
  Receipt Date: 20090205
  Transmission Date: 20090719
  Serious: Yes (Hospitalization)
  Sender: FDA-Public Use
  Company Number: JP-ASTRAZENECA-2008AP09813

PATIENT
  Age: 37 Year
  Sex: Male
  Weight: 56 kg

DRUGS (10)
  1. OMEPRAL [Suspect]
     Indication: PEPTIC ULCER
     Dosage: DOSE UNKNOWN
     Route: 042
     Dates: start: 20081124, end: 20081203
  2. OMEPRAZOLE [Suspect]
     Indication: PEPTIC ULCER
     Route: 048
     Dates: start: 20081211, end: 20081213
  3. GASTER [Suspect]
     Indication: PEPTIC ULCER
     Route: 042
     Dates: start: 20081203, end: 20081210
  4. SOLCOSERYL [Concomitant]
     Dosage: DOSE UNKNOWN
     Route: 065
  5. ROPION [Concomitant]
     Dosage: DOSE UNKNOWN
     Route: 065
  6. DIAZEPAM [Concomitant]
     Dosage: DOSE UNKNOWN
     Route: 065
  7. SANDOSTATIN [Concomitant]
     Dosage: DOSE UNKNOWN
     Route: 058
  8. FULCALIQ 3 [Concomitant]
     Dosage: DOSE UNKNOWN
     Route: 042
  9. INTRALIPOS10% [Concomitant]
     Dosage: DOSE UNKNOWN
     Route: 042
  10. VOLTAREN [Concomitant]
     Dosage: DOSE UNKNOWN
     Route: 054

REACTIONS (1)
  - RHABDOMYOLYSIS [None]
